FAERS Safety Report 21311439 (Version 2)
Quarter: 2022Q4

REPORT INFORMATION
  Report Type: Report from Study
  Country: US (occurrence: US)
  Receive Date: 20220909
  Receipt Date: 20221008
  Transmission Date: 20230113
  Serious: Yes (Hospitalization, Other)
  Sender: FDA-Public Use
  Company Number: US-BRISTOL-MYERS SQUIBB COMPANY-2022-100300

PATIENT
  Age: 74 Year
  Sex: Male
  Weight: 80.7 kg

DRUGS (8)
  1. REVLIMID [Suspect]
     Active Substance: LENALIDOMIDE
     Indication: Plasma cell myeloma in remission
     Dosage: DAILY
     Route: 048
     Dates: start: 2014
  2. REVLIMID [Suspect]
     Active Substance: LENALIDOMIDE
     Indication: Anaemia
  3. ASPIRIN [Concomitant]
     Active Substance: ASPIRIN
  4. CETIRIZINE HYDROCHLORIDE [Concomitant]
     Active Substance: CETIRIZINE HYDROCHLORIDE
  5. VITAMIN E [Concomitant]
     Active Substance: .ALPHA.-TOCOPHEROL
  6. DILAUDID [Concomitant]
     Active Substance: HYDROMORPHONE HYDROCHLORIDE
  7. MIRALAX [Concomitant]
     Active Substance: POLYETHYLENE GLYCOL 3350
  8. STOOL SOFTENER (DOCUSATE) [Concomitant]
     Active Substance: DOCUSATE

REACTIONS (3)
  - Jaundice [Unknown]
  - Arrhythmia [Unknown]
  - Renal disorder [Recovering/Resolving]

NARRATIVE: CASE EVENT DATE: 20210101
